FAERS Safety Report 7070586-X (Version None)
Quarter: 2010Q4

REPORT INFORMATION
  Report Type: 
  Country: None (occurrence: None)
  Receive Date: 20101029
  Receipt Date: 20101025
  Transmission Date: 20110411
  Serious: Yes (Other)
  Sender: FDA-Public Use
  Company Number: US-PFIZER INC-2010136203

PATIENT
  Sex: Male
  Weight: 93 kg

DRUGS (1)
  1. CELEBREX [Suspect]
     Indication: BACK DISORDER
     Dosage: 200 MG, DAILY
     Route: 048
     Dates: start: 20101011, end: 20101020

REACTIONS (4)
  - ABDOMINAL DISCOMFORT [None]
  - ABDOMINAL PAIN UPPER [None]
  - ADVERSE DRUG REACTION [None]
  - HAEMORRHAGE [None]
